FAERS Safety Report 20325199 (Version 7)
Quarter: 2022Q1

REPORT INFORMATION
  Report Type: Report from Study
  Country: US (occurrence: US)
  Receive Date: 20220112
  Receipt Date: 20220216
  Transmission Date: 20220423
  Serious: No
  Sender: FDA-Public Use
  Company Number: US-NOVARTISTESTPH-NVSC2022US005353

PATIENT
  Age: 60 Year
  Sex: Female

DRUGS (4)
  1. PIQRAY [Suspect]
     Active Substance: ALPELISIB
     Indication: Breast cancer female
     Dosage: UNK
     Route: 048
  2. PIQRAY [Suspect]
     Active Substance: ALPELISIB
     Dosage: 300 MG, QD
     Route: 048
     Dates: start: 20220105
  3. PIQRAY [Suspect]
     Active Substance: ALPELISIB
     Dosage: 150 MG (EVERY OTHER DAY)
     Route: 048
  4. PIQRAY [Suspect]
     Active Substance: ALPELISIB
     Route: 048

REACTIONS (14)
  - Pyrexia [Unknown]
  - Gait disturbance [Not Recovered/Not Resolved]
  - Chest discomfort [Not Recovered/Not Resolved]
  - Paraesthesia [Not Recovered/Not Resolved]
  - Lip swelling [Not Recovered/Not Resolved]
  - Weight decreased [Not Recovered/Not Resolved]
  - Dyspnoea [Unknown]
  - Cough [Not Recovered/Not Resolved]
  - Urticaria [Unknown]
  - Rash [Not Recovered/Not Resolved]
  - Blood glucose increased [Unknown]
  - Chest pain [Unknown]
  - Fluid retention [Unknown]
  - Adverse reaction [Unknown]

NARRATIVE: CASE EVENT DATE: 20220105
